FAERS Safety Report 24560487 (Version 1)
Quarter: 2024Q4

REPORT INFORMATION
  Report Type: Spontaneous
  Country: US (occurrence: US)
  Receive Date: 20241029
  Receipt Date: 20241029
  Transmission Date: 20250114
  Serious: No
  Sender: BAUSCH AND LOMB
  Company Number: US-BAUSCH-BL-2024-015840

PATIENT
  Age: 55 Year
  Sex: Female
  Weight: 45.4 kg

DRUGS (1)
  1. RETIN-A [Suspect]
     Active Substance: TRETINOIN
     Indication: Acne
     Route: 061

REACTIONS (2)
  - Application site photosensitivity reaction [Not Recovered/Not Resolved]
  - Application site erythema [Not Recovered/Not Resolved]
